FAERS Safety Report 24863106 (Version 4)
Quarter: 2025Q1

REPORT INFORMATION
  Report Type: Report from Study
  Country: DE (occurrence: DE)
  Receive Date: 20250120
  Receipt Date: 20250307
  Transmission Date: 20250409
  Serious: Yes (Hospitalization, Other)
  Sender: IPSEN BIOPHARMACEUTICALS, INC.
  Company Number: DE-IPSEN Group, Research and Development-2025-01271

PATIENT
  Age: 83 Year
  Sex: Female

DRUGS (2)
  1. LANREOTIDE ACETATE [Suspect]
     Active Substance: LANREOTIDE ACETATE
     Indication: Gastroenteropancreatic neuroendocrine tumour disease
     Dosage: S.C
     Route: 058
     Dates: start: 20240611, end: 2024
  2. LANREOTIDE ACETATE [Suspect]
     Active Substance: LANREOTIDE ACETATE
     Dosage: S.C
     Route: 058
     Dates: start: 202412

REACTIONS (5)
  - Weight decreased [Unknown]
  - Dementia [Unknown]
  - Off label use [Unknown]
  - Prescribed underdose [Unknown]
  - Diarrhoea [Not Recovered/Not Resolved]

NARRATIVE: CASE EVENT DATE: 20240611
